FAERS Safety Report 9255792 (Version 2)
Quarter: 2014Q3

REPORT INFORMATION
  Report Type: Report from Study
  Country: FR (occurrence: FR)
  Receive Date: 20130425
  Receipt Date: 20140701
  Transmission Date: 20150326
  Serious: Yes (Hospitalization)
  Sender: FDA-Public Use
  Company Number: FR-TEVA-399840ISR

PATIENT
  Age: 50 Year
  Sex: Male
  Weight: 47 kg

DRUGS (1)
  1. EFFENTORA [Suspect]
     Active Substance: FENTANYL CITRATE
     Indication: CANCER PAIN
     Dosage: 400 MICROGRAM DAILY;
     Route: 002
     Dates: start: 20130312, end: 20130315

REACTIONS (1)
  - Functional gastrointestinal disorder [Unknown]

NARRATIVE: CASE EVENT DATE: 20130315
